FAERS Safety Report 15427304 (Version 3)
Quarter: 2019Q3

REPORT INFORMATION
  Report Type: Report from Study
  Country: GB (occurrence: GB)
  Receive Date: 20180925
  Receipt Date: 20190906
  Transmission Date: 20191004
  Serious: Yes (Death, Hospitalization, Other)
  Sender: FDA-Public Use
  Company Number: PHHY2018GB102576

PATIENT
  Age: 76 Year
  Sex: Female

DRUGS (1)
  1. COSENTYX [Suspect]
     Active Substance: SECUKINUMAB
     Indication: PSORIASIS
     Dosage: 300 MG, QW
     Route: 065
     Dates: start: 20160104

REACTIONS (11)
  - Bronchial wall thickening [Unknown]
  - Chronic obstructive pulmonary disease [Fatal]
  - Left ventricular failure [Fatal]
  - Cardiac failure congestive [Fatal]
  - Personality disorder [Unknown]
  - Staphylococcal infection [Unknown]
  - Cor pulmonale [Fatal]
  - Fall [Unknown]
  - Atrial fibrillation [Fatal]
  - Bronchiectasis [Fatal]
  - Acute kidney injury [Fatal]

NARRATIVE: CASE EVENT DATE: 20160124
